FAERS Safety Report 7330399-8 (Version None)
Quarter: 2011Q1

REPORT INFORMATION
  Report Type: 
  Country: None (occurrence: None)
  Receive Date: 20110304
  Receipt Date: 20110222
  Transmission Date: 20110831
  Serious: No
  Sender: FDA-Public Use
  Company Number: US-BIOGENIDEC-2010BI032103

PATIENT
  Sex: Male

DRUGS (2)
  1. TYSABRI [Suspect]
     Indication: MULTIPLE SCLEROSIS
     Route: 042
     Dates: start: 20090511, end: 20100420
  2. TYSABRI [Suspect]
     Route: 042
     Dates: start: 20100607

REACTIONS (11)
  - PAIN [None]
  - LOSS OF CONTROL OF LEGS [None]
  - DRUG INEFFECTIVE [None]
  - PARAESTHESIA [None]
  - HYPOAESTHESIA [None]
  - ASTHENIA [None]
  - MALAISE [None]
  - INSOMNIA [None]
  - PAIN IN EXTREMITY [None]
  - BURNING SENSATION [None]
  - MUSCULOSKELETAL STIFFNESS [None]
